FAERS Safety Report 10157079 (Version 2)
Quarter: 2014Q2

REPORT INFORMATION
  Report Type: Spontaneous
  Country: US (occurrence: US)
  Receive Date: 20140507
  Receipt Date: 20140522
  Transmission Date: 20141212
  Serious: No
  Sender: FDA-Public Use
  Company Number: US-PFIZER INC-2014121951

PATIENT
  Sex: Female

DRUGS (11)
  1. ZITHROMAX [Suspect]
     Dosage: UNK
  2. DOXYCYCLINE CALCIUM [Suspect]
     Dosage: UNK
  3. SUMATRIPTAN SUCCINATE [Suspect]
     Dosage: UNK
  4. VANCOMYCIN [Suspect]
     Dosage: UNK
  5. REGLAN [Suspect]
     Dosage: UNK
  6. COMPAZINE [Suspect]
     Dosage: UNK
  7. VICODIN [Suspect]
     Dosage: UNK
  8. TRIMOX [Suspect]
     Dosage: UNK
  9. CODEINE [Suspect]
     Dosage: UNK
  10. TOPAMAX [Suspect]
     Dosage: UNK
  11. ELAVIL [Suspect]
     Dosage: UNK

REACTIONS (1)
  - Drug hypersensitivity [Unknown]
